FAERS Safety Report 4402881-4 (Version None)
Quarter: 2004Q3

REPORT INFORMATION
  Report Type: 
  Country: None (occurrence: None)
  Receive Date: 20040719
  Receipt Date: 20040706
  Transmission Date: 20050211
  Serious: Yes (Hospitalization)
  Sender: FDA-Public Use
  Company Number: 2004042614

PATIENT
  Sex: Male
  Weight: 158.759 kg

DRUGS (5)
  1. NARDIL [Suspect]
     Indication: DEPRESSION
  2. NEURONTIN [Suspect]
     Indication: DEPRESSION
  3. LORAZEPAM [Suspect]
     Indication: ILL-DEFINED DISORDER
  4. CLOZAPINE [Concomitant]
  5. LAMOTRIGINE [Concomitant]

REACTIONS (9)
  - ANGER [None]
  - ANXIETY [None]
  - CONDITION AGGRAVATED [None]
  - DEPRESSION [None]
  - DRUG WITHDRAWAL SYNDROME [None]
  - FEELING HOT [None]
  - MALAISE [None]
  - MOOD SWINGS [None]
  - PHARMACEUTICAL PRODUCT COMPLAINT [None]
